FAERS Safety Report 8996665 (Version 1)
Quarter: 2013Q1

REPORT INFORMATION
  Report Type: Spontaneous
  Country: US (occurrence: US)
  Receive Date: 20130104
  Receipt Date: 20130104
  Transmission Date: 20140127
  Serious: Yes (Other)
  Sender: FDA-Public Use
  Company Number: US-PFIZER INC-2013002563

PATIENT
  Age: 58 Year
  Sex: Female
  Weight: 77.1 kg

DRUGS (5)
  1. CHANTIX [Suspect]
     Indication: SMOKING CESSATION THERAPY
     Dosage: UNK
  2. ASPIRIN [Suspect]
     Dosage: UNK
  3. ZOCOR [Concomitant]
     Dosage: 20 MG, UNK
  4. SINGULAIR [Concomitant]
     Dosage: 10 MG, UNK
  5. VASCOR [Concomitant]
     Dosage: 500 MG, UNK

REACTIONS (4)
  - Ejection fraction decreased [Unknown]
  - Hypertension [Unknown]
  - Nausea [Unknown]
  - Drug hypersensitivity [Unknown]
